FAERS Safety Report 11210864 (Version 2)
Quarter: 2015Q3

REPORT INFORMATION
  Report Type: Report from Study
  Country: AU (occurrence: AU)
  Receive Date: 20150622
  Receipt Date: 20150904
  Transmission Date: 20151125
  Serious: Yes (Hospitalization, Other)
  Sender: FDA-Public Use
  Company Number: PHHY2015AU067737

PATIENT
  Age: 49 Year
  Sex: Female
  Weight: 98.4 kg

DRUGS (13)
  1. CHOLECALCIFEROL [Concomitant]
     Active Substance: CHOLECALCIFEROL
     Indication: VITAMIN D DEFICIENCY
     Dosage: 25 UG, QD
     Route: 048
  2. LANTUS [Concomitant]
     Active Substance: INSULIN GLARGINE
     Indication: DIABETES MELLITUS
     Dosage: 36 U, QD
     Route: 058
  3. RAMIPRIL. [Concomitant]
     Active Substance: RAMIPRIL
     Indication: HYPERTENSION
     Dosage: 1.25 MG, QD
     Route: 048
  4. PALIPERIDONE [Concomitant]
     Active Substance: PALIPERIDONE
     Indication: SCHIZOPHRENIA
     Dosage: 100 MG, (ONCE IN EVERY 4 WEEKS)
     Route: 030
  5. CLOZARIL [Suspect]
     Active Substance: CLOZAPINE
     Indication: SCHIZOPHRENIA
     Dosage: 400 MG, QD (NOCTE)
     Route: 048
     Dates: start: 20140415, end: 20150610
  6. ATORVASTATIN [Concomitant]
     Active Substance: ATORVASTATIN
     Indication: BLOOD CHOLESTEROL INCREASED
     Dosage: 40 MG, QD
     Route: 048
     Dates: start: 20131001
  7. CALCIUM CARBONATE. [Concomitant]
     Active Substance: CALCIUM CARBONATE
     Indication: OSTEOPOROSIS
     Dosage: 600 MG, QD
     Route: 048
  8. CLOZARIL [Suspect]
     Active Substance: CLOZAPINE
     Dosage: 200 MG, QD (NOCTE)
     Route: 048
     Dates: start: 20150611
  9. METOPROLOL [Concomitant]
     Active Substance: METOPROLOL
     Indication: HYPERTENSION
     Dosage: 75 MG, UNK
     Route: 048
     Dates: end: 20150617
  10. METFORMIN [Concomitant]
     Active Substance: METFORMIN HYDROCHLORIDE
     Indication: DIABETES MELLITUS
     Dosage: 1 G, QD
     Route: 048
     Dates: start: 20141104
  11. METOPROLOL [Concomitant]
     Active Substance: METOPROLOL
     Dosage: 25 MG, BID
     Route: 048
  12. PANTOPRAZOLE [Concomitant]
     Active Substance: PANTOPRAZOLE SODIUM
     Indication: GASTROOESOPHAGEAL REFLUX DISEASE
     Dosage: 40 MG, QD
     Route: 048
  13. NOVORAPID [Concomitant]
     Active Substance: INSULIN ASPART
     Indication: DIABETES MELLITUS
     Dosage: 8 U, TID
     Route: 058

REACTIONS (32)
  - Blood creatinine increased [Not Recovered/Not Resolved]
  - Gamma-glutamyltransferase increased [Unknown]
  - Hydronephrosis [Unknown]
  - C-reactive protein increased [Not Recovered/Not Resolved]
  - Blood chloride increased [Unknown]
  - Urinary tract infection [Recovering/Resolving]
  - Blood osmolarity decreased [Recovered/Resolved]
  - Blood chloride decreased [Recovered/Resolved]
  - Glomerular filtration rate decreased [Not Recovered/Not Resolved]
  - Sepsis [Recovering/Resolving]
  - Hydroureter [Unknown]
  - Cough [Unknown]
  - Blood sodium decreased [Recovered/Resolved]
  - Blood calcium decreased [Unknown]
  - Tenderness [Unknown]
  - Anion gap decreased [Unknown]
  - Blood sodium decreased [Recovered/Resolved]
  - Protein total decreased [Not Recovered/Not Resolved]
  - Blood bicarbonate decreased [Unknown]
  - Constipation [Recovering/Resolving]
  - Blood glucose increased [Recovered/Resolved]
  - Pyrexia [Unknown]
  - Dysuria [Unknown]
  - Dyspnoea [Unknown]
  - Blood albumin decreased [Unknown]
  - Antipsychotic drug level above therapeutic [Recovered/Resolved]
  - Urosepsis [Unknown]
  - Neutrophil toxic granulation present [Unknown]
  - Blood lactate dehydrogenase decreased [Recovered/Resolved]
  - Sputum discoloured [Unknown]
  - Blood creatine phosphokinase decreased [Unknown]
  - Dizziness postural [Unknown]

NARRATIVE: CASE EVENT DATE: 20140710
